FAERS Safety Report 8551483-7 (Version None)
Quarter: 2012Q3

REPORT INFORMATION
  Report Type: 
  Country: None (occurrence: None)
  Receive Date: 20120730
  Receipt Date: 20120717
  Transmission Date: 20120928
  Serious: Yes (Disabling, Other)
  Sender: FDA-Public Use
  Company Number: US-MSD-1207USA007169

PATIENT

DRUGS (3)
  1. FOSAMAX [Suspect]
     Dosage: UNK
     Dates: end: 20100801
  2. FOSAMAX PLUS D [Suspect]
     Dosage: UNK
     Dates: end: 20100801
  3. FOSAMAX [Suspect]
     Dosage: UNK
     Dates: start: 19980501, end: 20100801

REACTIONS (2)
  - FEMUR FRACTURE [None]
  - STRESS FRACTURE [None]
